FAERS Safety Report 7495232-2 (Version None)
Quarter: 2011Q2

REPORT INFORMATION
  Report Type: 
  Country: None (occurrence: None)
  Receive Date: 20110522
  Receipt Date: 20110509
  Transmission Date: 20111010
  Serious: Yes (Hospitalization)
  Sender: FDA-Public Use
  Company Number: US-ELI_LILLY_AND_COMPANY-US201102001887

PATIENT
  Sex: Female

DRUGS (18)
  1. FORTEO [Suspect]
     Indication: OSTEOPOROSIS
     Dosage: 20 UG, DAILY (1/D)
     Dates: start: 20110128
  2. NIACIN [Concomitant]
  3. NEXIUM [Concomitant]
  4. PLAVIX [Concomitant]
  5. HYDROCODONE [Concomitant]
  6. ELMIRON [Concomitant]
  7. LOVAZA [Concomitant]
  8. LIPITOR [Concomitant]
  9. COZAAR [Concomitant]
  10. ASPIRIN [Concomitant]
  11. GLUCOSAMINE + CHONDROITIN [Concomitant]
  12. MULTI-VITAMIN [Concomitant]
  13. VITAMIN D [Concomitant]
  14. FORTEO [Suspect]
     Dosage: 20 UG, QD
  15. PREMPRO [Concomitant]
  16. APAP TAB [Concomitant]
  17. CLARITIN [Concomitant]
  18. COREG [Concomitant]

REACTIONS (4)
  - COMPRESSION FRACTURE [None]
  - MUSCULOSKELETAL CHEST PAIN [None]
  - INTERVERTEBRAL DISC DEGENERATION [None]
  - DRUG DOSE OMISSION [None]
